FAERS Safety Report 14248877 (Version 1)
Quarter: 2017Q4

REPORT INFORMATION
  Report Type: Spontaneous
  Country: CN (occurrence: CN)
  Receive Date: 20171204
  Receipt Date: 20171204
  Transmission Date: 20180321
  Serious: Yes (Other)
  Sender: FDA-Public Use
  Company Number: CN-PFIZER INC-2017513172

PATIENT
  Age: 21 Year
  Sex: Female
  Weight: 46 kg

DRUGS (1)
  1. CYTOSAR [Suspect]
     Active Substance: CYTARABINE
     Indication: LEUKAEMIA
     Dosage: 0.02 G, 1X/DAY
     Route: 058
     Dates: start: 20171012, end: 20171012

REACTIONS (5)
  - Visual impairment [Recovering/Resolving]
  - Head discomfort [Recovering/Resolving]
  - Dizziness [Recovering/Resolving]
  - Hypoaesthesia [Recovering/Resolving]
  - Asthenia [Recovering/Resolving]

NARRATIVE: CASE EVENT DATE: 20171012
